FAERS Safety Report 11980699 (Version 1)
Quarter: 2016Q1

REPORT INFORMATION
  Report Type: Spontaneous
  Country: FR (occurrence: FR)
  Receive Date: 20160129
  Receipt Date: 20160129
  Transmission Date: 20160526
  Serious: Yes (Life-Threatening)
  Sender: FDA-Public Use
  Company Number: FR-SA-2016SA015918

PATIENT
  Age: 86 Year
  Sex: Female

DRUGS (11)
  1. TRANXENE T-TAB [Suspect]
     Active Substance: CLORAZEPATE DIPOTASSIUM
     Indication: AGITATION
     Route: 048
     Dates: start: 20151204, end: 20151204
  2. LASILIX [Suspect]
     Active Substance: FUROSEMIDE
     Dosage: START DATE-UNK FOR MONTHS
     Route: 048
     Dates: end: 20151204
  3. VANCOMYCINE [Suspect]
     Active Substance: VANCOMYCIN
     Indication: DEVICE RELATED INFECTION
     Route: 042
     Dates: start: 20151127, end: 20151201
  4. SERESTA [Suspect]
     Active Substance: OXAZEPAM
     Indication: AGITATION
     Dosage: DOSE:10 TO 30 MG PER DAY
     Route: 048
     Dates: start: 20151130, end: 20151204
  5. MONTELUKAST [Concomitant]
     Active Substance: MONTELUKAST SODIUM
     Route: 065
  6. RISPERDAL [Suspect]
     Active Substance: RISPERIDONE
     Route: 048
     Dates: start: 20151124, end: 20151205
  7. GENTAMICIN. [Suspect]
     Active Substance: GENTAMICIN
     Indication: DEVICE RELATED INFECTION
     Route: 042
     Dates: start: 20151127, end: 20151127
  8. CALCIPARINE [Concomitant]
     Active Substance: HEPARIN CALCIUM
     Route: 065
  9. CEFEPIME [Suspect]
     Active Substance: CEFEPIME HYDROCHLORIDE
     Indication: DEVICE RELATED INFECTION
     Route: 042
     Dates: start: 20151127, end: 20151205
  10. MIANSERIN [Suspect]
     Active Substance: MIANSERIN
     Dosage: START DATE-UNK FOR MONTHS
     Route: 048
     Dates: end: 20151203
  11. TARDYFERON [Concomitant]
     Active Substance: FERROUS SULFATE\FOLIC ACID
     Route: 065

REACTIONS (2)
  - Acute kidney injury [Recovered/Resolved]
  - Coma [Recovered/Resolved]

NARRATIVE: CASE EVENT DATE: 20151205
